FAERS Safety Report 6682782-1 (Version None)
Quarter: 2010Q2

REPORT INFORMATION
  Report Type: 
  Country: None (occurrence: None)
  Receive Date: 20100415
  Receipt Date: 20100407
  Transmission Date: 20101027
  Serious: Yes (Life-Threatening, Other)
  Sender: FDA-Public Use
  Company Number: JP-ABBOTT-07P-087-0421918-00

PATIENT
  Sex: Female

DRUGS (19)
  1. CEFDINIR [Suspect]
     Indication: URINARY TRACT INFECTION
     Route: 048
     Dates: start: 20071013, end: 20071014
  2. CEFDINIR [Suspect]
     Indication: PYREXIA
  3. CEFDINIR [Suspect]
     Indication: NASOPHARYNGITIS
  4. PL GRAN. [Suspect]
     Indication: URINARY TRACT INFECTION
     Route: 048
     Dates: start: 20071013, end: 20071014
  5. PL GRAN. [Suspect]
     Indication: PYREXIA
  6. VOLTAREN [Suspect]
     Indication: URINARY TRACT INFECTION
     Route: 054
     Dates: start: 20071013, end: 20071014
  7. VOLTAREN [Suspect]
     Indication: PYREXIA
  8. ASPIRIN [Concomitant]
     Indication: DRUG USE FOR UNKNOWN INDICATION
     Route: 048
  9. EXCEGRAN [Concomitant]
     Indication: DRUG USE FOR UNKNOWN INDICATION
     Route: 048
  10. TAKEPRON [Concomitant]
     Indication: DRUG USE FOR UNKNOWN INDICATION
     Route: 048
  11. OFLOXACIN [Concomitant]
     Indication: DRUG USE FOR UNKNOWN INDICATION
     Dosage: EYE OINTMENT
  12. PREDONINE [Concomitant]
     Indication: DRUG USE FOR UNKNOWN INDICATION
     Dosage: EYE OINTMENT
  13. METHYLPREDNISOLONE [Concomitant]
     Indication: DRUG USE FOR UNKNOWN INDICATION
  14. IMMUNE GLOBULIN NOS [Concomitant]
     Indication: DRUG USE FOR UNKNOWN INDICATION
     Route: 050
  15. CIPROFLOXACIN [Concomitant]
     Indication: DRUG USE FOR UNKNOWN INDICATION
  16. CLINDAMYCIN [Concomitant]
     Indication: DRUG USE FOR UNKNOWN INDICATION
  17. LINEZOLID [Concomitant]
     Indication: DRUG USE FOR UNKNOWN INDICATION
  18. COTRIM [Concomitant]
     Indication: DRUG USE FOR UNKNOWN INDICATION
     Dates: start: 20071115
  19. TEICOPLANIN [Concomitant]
     Indication: DRUG USE FOR UNKNOWN INDICATION

REACTIONS (3)
  - DRUG ERUPTION [None]
  - PNEUMONIA [None]
  - TOXIC EPIDERMAL NECROLYSIS [None]
